FAERS Safety Report 12668950 (Version 2)
Quarter: 2016Q3

REPORT INFORMATION
  Report Type: Spontaneous
  Country: MX (occurrence: MX)
  Receive Date: 20160819
  Receipt Date: 20160824
  Transmission Date: 20161109
  Serious: Yes (Hospitalization)
  Sender: FDA-Public Use
  Company Number: MX-SA-2014SA173419

PATIENT
  Age: 47 Year
  Sex: Male
  Weight: 74 kg

DRUGS (12)
  1. ATORVASTATIN [Concomitant]
     Active Substance: ATORVASTATIN
     Dates: start: 20140104, end: 20140312
  2. RANITIDINE. [Concomitant]
     Active Substance: RANITIDINE
     Dates: start: 20140104, end: 20140113
  3. RANITIDINE. [Concomitant]
     Active Substance: RANITIDINE
     Dates: start: 20140114, end: 20140312
  4. TRAMADOL. [Concomitant]
     Active Substance: TRAMADOL
     Dates: start: 20140105, end: 20140110
  5. ENALAPRIL [Concomitant]
     Active Substance: ENALAPRIL
     Dates: start: 20140104, end: 20140312
  6. CLOPIDOGREL BISULFATE. [Suspect]
     Active Substance: CLOPIDOGREL BISULFATE
     Route: 065
     Dates: start: 20140104, end: 20140104
  7. ASPIRIN PROTECT [Suspect]
     Active Substance: ASPIRIN
     Route: 065
     Dates: start: 20140104, end: 20140104
  8. OMEGA-3 POLYUNSATURATED FATTY ACID [Concomitant]
     Route: 048
     Dates: start: 20140109, end: 20140312
  9. CLOPIDOGREL BISULFATE. [Suspect]
     Active Substance: CLOPIDOGREL BISULFATE
     Route: 065
     Dates: start: 20140105, end: 20140312
  10. ASPIRIN PROTECT [Suspect]
     Active Substance: ASPIRIN
     Route: 065
     Dates: start: 20160113, end: 20160127
  11. ASPIRIN PROTECT [Suspect]
     Active Substance: ASPIRIN
     Route: 065
     Dates: start: 20140105, end: 20140312
  12. ENOXAPARIN [Concomitant]
     Active Substance: ENOXAPARIN
     Dates: start: 20140104, end: 20140110

REACTIONS (6)
  - Gastritis [Unknown]
  - Melaena [Unknown]
  - Upper gastrointestinal haemorrhage [Recovered/Resolved]
  - Haematemesis [Unknown]
  - Hiatus hernia [Unknown]
  - Oesophagitis [Unknown]

NARRATIVE: CASE EVENT DATE: 20140311
